FAERS Safety Report 5969648-7 (Version None)
Quarter: 2008Q4

REPORT INFORMATION
  Report Type: 
  Country: None (occurrence: None)
  Receive Date: 20081126
  Receipt Date: 20080916
  Transmission Date: 20090506
  Serious: No
  Sender: FDA-Public Use
  Company Number: US-ABBOTT-08P-163-0476697-00

PATIENT
  Sex: Female

DRUGS (9)
  1. SIMCOR [Suspect]
     Indication: DRUG USE FOR UNKNOWN INDICATION
     Dosage: 500/20MG
  2. LEVOTHYROXINE SODIUM [Concomitant]
     Indication: DRUG USE FOR UNKNOWN INDICATION
  3. ENALAPRIL MALEATE [Concomitant]
     Indication: DRUG USE FOR UNKNOWN INDICATION
  4. VERAPAMIL [Concomitant]
     Indication: DRUG USE FOR UNKNOWN INDICATION
  5. LOVAZA [Concomitant]
     Indication: DRUG USE FOR UNKNOWN INDICATION
  6. PYRIDOXINE HYDROCHLORIDE [Concomitant]
     Indication: DRUG USE FOR UNKNOWN INDICATION
  7. CYANOCOBALAMIN [Concomitant]
     Indication: DRUG USE FOR UNKNOWN INDICATION
  8. ASCORBIC ACID [Concomitant]
     Indication: DRUG USE FOR UNKNOWN INDICATION
  9. M.V.I. [Concomitant]
     Indication: DRUG USE FOR UNKNOWN INDICATION

REACTIONS (7)
  - ANGIOPATHY [None]
  - DIZZINESS [None]
  - ERYTHEMA [None]
  - FLUSHING [None]
  - HEADACHE [None]
  - PAIN [None]
  - PARAESTHESIA [None]
